FAERS Safety Report 4801888-2 (Version None)
Quarter: 2005Q4

REPORT INFORMATION
  Report Type: 
  Country: None (occurrence: None)
  Receive Date: 20051018
  Receipt Date: 20050916
  Transmission Date: 20060501
  Serious: No
  Sender: FDA-Public Use
  Company Number: PHBS2005JP13725

PATIENT
  Age: 65 Year

DRUGS (1)
  1. DIOVAN [Suspect]
     Dosage: 80 MG, QD
     Route: 048
     Dates: start: 20050914, end: 20050916

REACTIONS (2)
  - HYPERVENTILATION [None]
  - TREMOR [None]
